FAERS Safety Report 16851948 (Version 1)
Quarter: 2019Q3

REPORT INFORMATION
  Report Type: Spontaneous
  Country: US (occurrence: US)
  Receive Date: 20190925
  Receipt Date: 20190925
  Transmission Date: 20191005
  Serious: No
  Sender: FDA-Public Use
  Company Number: US-TEVA-2019-US-1111434

PATIENT
  Sex: Female

DRUGS (1)
  1. OXAZEPAM. [Suspect]
     Active Substance: OXAZEPAM
     Route: 065
     Dates: start: 1999

REACTIONS (1)
  - Headache [Unknown]

NARRATIVE: CASE EVENT DATE: 201909
